FAERS Safety Report 15946853 (Version 1)
Quarter: 2019Q1

REPORT INFORMATION
  Report Type: Spontaneous
  Country: US (occurrence: US)
  Receive Date: 20190211
  Receipt Date: 20190211
  Transmission Date: 20190417
  Serious: No
  Sender: FDA-Public Use
  Company Number: US-PFIZER INC-2019058975

PATIENT
  Sex: Female
  Weight: 52.15 kg

DRUGS (1)
  1. ESTRING [Suspect]
     Active Substance: ESTRADIOL
     Indication: PAIN
     Dosage: UNK

REACTIONS (2)
  - Pain [Unknown]
  - Product size issue [Unknown]
